FAERS Safety Report 4303980-8 (Version None)
Quarter: 2004Q1

REPORT INFORMATION
  Report Type: 
  Country: None (occurrence: None)
  Receive Date: 20040223
  Receipt Date: 20031210
  Transmission Date: 20041129
  Serious: No
  Sender: FDA-Public Use
  Company Number: PHEH2003US10659

PATIENT
  Age: 85 Year
  Sex: Female

DRUGS (6)
  1. ZELNORM [Suspect]
     Indication: IRRITABLE BOWEL SYNDROME
     Dosage: 2 MG, BID, ORAL; 2 MG TID; 2 MG, BID, ORAL; 2 MG QD
     Route: 048
     Dates: start: 20030819, end: 20030929
  2. ZELNORM [Suspect]
     Indication: IRRITABLE BOWEL SYNDROME
     Dosage: 2 MG, BID, ORAL; 2 MG TID; 2 MG, BID, ORAL; 2 MG QD
     Route: 048
     Dates: start: 20030930, end: 20031113
  3. ZELNORM [Suspect]
     Indication: IRRITABLE BOWEL SYNDROME
     Dosage: 2 MG, BID, ORAL; 2 MG TID; 2 MG, BID, ORAL; 2 MG QD
     Route: 048
     Dates: start: 20031114, end: 20031117
  4. ZELNORM [Suspect]
     Indication: IRRITABLE BOWEL SYNDROME
     Dosage: 2 MG, BID, ORAL; 2 MG TID; 2 MG, BID, ORAL; 2 MG QD
     Route: 048
     Dates: start: 20031118
  5. OXYCONTIN [Suspect]
  6. NEURONTIN [Concomitant]

REACTIONS (5)
  - ABDOMINAL PAIN [None]
  - ABDOMINAL RIGIDITY [None]
  - DEFAECATION URGENCY [None]
  - DIARRHOEA [None]
  - DIZZINESS [None]
